FAERS Safety Report 5057609-4 (Version None)
Quarter: 2006Q3

REPORT INFORMATION
  Report Type: 
  Country: None (occurrence: None)
  Receive Date: 20060721
  Receipt Date: 20051216
  Transmission Date: 20061208
  Serious: Yes (Hospitalization)
  Sender: FDA-Public Use
  Company Number: US-GLAXOSMITHKLINE-A0586484A

PATIENT
  Sex: Male

DRUGS (1)
  1. AVANDIA [Suspect]
     Route: 048
     Dates: start: 20000101

REACTIONS (1)
  - PLEURAL EFFUSION [None]
